FAERS Safety Report 7459519-1 (Version None)
Quarter: 2011Q2

REPORT INFORMATION
  Report Type: 
  Country: None (occurrence: None)
  Receive Date: 20110504
  Receipt Date: 20110504
  Transmission Date: 20111010
  Serious: Yes (Life-Threatening)
  Sender: FDA-Public Use
  Company Number: None

PATIENT
  Age: 59 Year
  Sex: Female
  Weight: 67.1324 kg

DRUGS (2)
  1. PREDNISONE [Suspect]
     Indication: PAIN
     Dosage: 100 MG FOR 1 DAY PO; 50 MG DAILY FOR 6 DAYS PO
     Route: 048
     Dates: start: 20110430, end: 20110430
  2. PREDNISONE [Suspect]
     Indication: PAIN
     Dosage: 100 MG FOR 1 DAY PO; 50 MG DAILY FOR 6 DAYS PO
     Route: 048
     Dates: start: 20110429, end: 20110429

REACTIONS (8)
  - FEELING HOT [None]
  - ERYTHEMA [None]
  - RASH [None]
  - SKIN BURNING SENSATION [None]
  - DYSGEUSIA [None]
  - URTICARIA [None]
  - PARAESTHESIA ORAL [None]
  - DYSPHAGIA [None]
